FAERS Safety Report 9671672 (Version 1)
Quarter: 2013Q4

REPORT INFORMATION
  Report Type: Spontaneous
  Country: US (occurrence: US)
  Receive Date: 20131106
  Receipt Date: 20131106
  Transmission Date: 20140711
  Serious: No
  Sender: FDA-Public Use
  Company Number: US-B.I. PHARMACEUTICALS,INC./RIDGEFIELD-2013-BI-34182BP

PATIENT
  Age: 49 Year
  Sex: Male
  Weight: 113 kg

DRUGS (6)
  1. ZANTAC (RANITIDINE HYDROCHLORIDE) [Suspect]
     Indication: DYSPEPSIA
     Dosage: 150 MG
     Route: 048
     Dates: start: 20131006, end: 20131022
  2. ZANTAC (RANITIDINE HYDROCHLORIDE) [Suspect]
     Indication: DYSPEPSIA
  3. MELOXICAM [Concomitant]
     Indication: INFLAMMATION
     Dosage: 7.5 MG
     Route: 048
  4. METHADONE [Concomitant]
     Dosage: 160 MG
     Route: 048
  5. DILAUDID [Concomitant]
     Indication: NECK PAIN
     Dosage: 6 ANZ
     Route: 048
  6. DILAUDID [Concomitant]
     Indication: MUSCULOSKELETAL PAIN

REACTIONS (3)
  - Breast tenderness [Not Recovered/Not Resolved]
  - Breast swelling [Not Recovered/Not Resolved]
  - Nipple pain [Not Recovered/Not Resolved]
